FAERS Safety Report 15756993 (Version 1)
Quarter: 2018Q4

REPORT INFORMATION
  Report Type: Report from Study
  Country: IT (occurrence: IT)
  Receive Date: 20181224
  Receipt Date: 20181224
  Transmission Date: 20190205
  Serious: Yes (Hospitalization, Other)
  Sender: FDA-Public Use
  Company Number: IT-BRISTOL-MYERS SQUIBB COMPANY-BMS-2018-117905

PATIENT
  Age: 78 Year
  Sex: Female

DRUGS (1)
  1. WARFARIN SODIUM. [Suspect]
     Active Substance: WARFARIN SODIUM
     Indication: ATRIAL FIBRILLATION
     Dosage: 17.5 MG, 1 WEEK
     Route: 048
     Dates: start: 19980101, end: 20170924

REACTIONS (6)
  - Vomiting [Recovering/Resolving]
  - Aneurysm [Recovering/Resolving]
  - Spontaneous haemorrhage [Recovering/Resolving]
  - Vertigo [Recovering/Resolving]
  - Labyrinthitis [Recovering/Resolving]
  - Malaise [Recovering/Resolving]

NARRATIVE: CASE EVENT DATE: 20170924
